FAERS Safety Report 11361132 (Version 3)
Quarter: 2015Q4

REPORT INFORMATION
  Report Type: Spontaneous
  Country: GB (occurrence: GB)
  Receive Date: 20150810
  Receipt Date: 20151023
  Transmission Date: 20160304
  Serious: Yes (Other)
  Sender: FDA-Public Use
  Company Number: GB-PFIZER INC-2015260811

PATIENT
  Age: 28 Year
  Sex: Male

DRUGS (4)
  1. DULOXETINE. [Concomitant]
     Active Substance: DULOXETINE
     Indication: DEPRESSION
     Dosage: 40 MG, 4X/DAY
     Dates: start: 2014
  2. CLOZARIL [Suspect]
     Active Substance: CLOZAPINE
     Indication: SCHIZOPHRENIA
     Dosage: 200 MG, 4X/DAY
     Route: 048
     Dates: start: 20150415, end: 20150904
  3. GABAPENTIN. [Suspect]
     Active Substance: GABAPENTIN
     Indication: NEURALGIA
     Dosage: 900 MG, 4X/DAY
     Route: 048
     Dates: start: 2013, end: 20150701
  4. QUETIAPINE [Concomitant]
     Active Substance: QUETIAPINE
     Indication: SCHIZOPHRENIA
     Dosage: 600 MG, 4X/DAY
     Route: 048
     Dates: start: 2014, end: 201508

REACTIONS (3)
  - White blood cell count decreased [Recovered/Resolved]
  - Neutrophil count abnormal [Recovered/Resolved]
  - Weight increased [Unknown]

NARRATIVE: CASE EVENT DATE: 20140619
